FAERS Safety Report 24349995 (Version 1)
Quarter: 2024Q3

REPORT INFORMATION
  Report Type: Spontaneous
  Country: US (occurrence: None)
  Receive Date: 20240920
  Receipt Date: 20240920
  Transmission Date: 20241017
  Serious: No
  Sender: Public
  Company Number: None

PATIENT
  Sex: Female

DRUGS (1)
  1. GAMMAGARD LIQUID [Suspect]
     Active Substance: HUMAN IMMUNOGLOBULIN G
     Dosage: OTHER STRENGTH : 30GM/300M;?FREQUENCY : MONTHLY;?
     Route: 042
     Dates: start: 202409, end: 202409

REACTIONS (3)
  - Headache [None]
  - Nausea [None]
  - Vomiting [None]
